FAERS Safety Report 8978626 (Version 2)
Quarter: 2013Q1

REPORT INFORMATION
  Report Type: Report from Study
  Country: US (occurrence: US)
  Receive Date: 20121220
  Receipt Date: 20130117
  Transmission Date: 20140127
  Serious: Yes (Death)
  Sender: FDA-Public Use
  Company Number: US-ROCHE-1169682

PATIENT
  Age: 47 Year
  Sex: Male
  Weight: 72.19 kg

DRUGS (5)
  1. ZELBORAF [Suspect]
     Indication: METASTATIC MALIGNANT MELANOMA
     Route: 048
     Dates: start: 20120120, end: 20121116
  2. LISINOPRIL [Concomitant]
     Indication: HYPERTENSION
     Route: 048
     Dates: start: 20120514, end: 20121114
  3. PRILOSEC [Concomitant]
     Indication: GASTROOESOPHAGEAL REFLUX DISEASE
     Route: 048
     Dates: start: 20120202, end: 20121114
  4. MS CONTIN [Concomitant]
     Indication: PAIN
     Route: 048
     Dates: start: 20120410, end: 20121114
  5. DOCUSATE SODIUM [Concomitant]
     Route: 048

REACTIONS (1)
  - Malignant pleural effusion [Fatal]
